FAERS Safety Report 8099121-4 (Version None)
Quarter: 2012Q1

REPORT INFORMATION
  Report Type: 
  Country: None (occurrence: None)
  Receive Date: 20120129
  Receipt Date: 20111003
  Transmission Date: 20120608
  Serious: No
  Sender: FDA-Public Use
  Company Number: US-ABBOTT-11P-163-0860482-00

PATIENT
  Age: 69 Year
  Sex: Female

DRUGS (17)
  1. TRICOR [Concomitant]
     Indication: PRODUCT USED FOR UNKNOWN INDICATION
  2. OXYBUTYNIN CHLORIDE [Concomitant]
     Indication: URINARY INCONTINENCE
  3. CLOBETASOL PROPIONATE [Concomitant]
     Indication: PSORIASIS
     Route: 061
  4. FLUOXETINE HYDROCHLORIDE [Concomitant]
     Indication: DEPRESSION
  5. ATENOLOL [Concomitant]
     Indication: HYPERTENSION
  6. VALTURNA [Concomitant]
     Indication: HYPERTENSION
     Dosage: 300/200 DAILY
  7. LEVOXYL [Concomitant]
     Indication: THYROID DISORDER
  8. VITAMIN D [Concomitant]
     Indication: PRODUCT USED FOR UNKNOWN INDICATION
  9. ALLERGY SHOTS [Concomitant]
     Indication: PRODUCT USED FOR UNKNOWN INDICATION
  10. PREMARIN [Concomitant]
     Indication: PRODUCT USED FOR UNKNOWN INDICATION
  11. AMLODIPINE BESYLATE [Concomitant]
     Indication: HYPERTENSION
  12. TEGRETOL-XR [Concomitant]
     Indication: CONVULSION
  13. FIBERCAP [Concomitant]
     Indication: DIARRHOEA
  14. LOVASTATIN [Concomitant]
     Indication: PRODUCT USED FOR UNKNOWN INDICATION
  15. PIROXICAM [Concomitant]
     Indication: PRODUCT USED FOR UNKNOWN INDICATION
     Dosage: AT NIGHT
  16. HUMIRA [Suspect]
     Indication: PSORIATIC ARTHROPATHY
     Dates: start: 20110725
  17. TERAZOSIN HCL [Concomitant]
     Indication: PRODUCT USED FOR UNKNOWN INDICATION
     Dosage: 1 IN THE MORNING, 2 AT NIGHT

REACTIONS (7)
  - PRURITUS [None]
  - GAIT DISTURBANCE [None]
  - ERYTHEMA [None]
  - FEELING HOT [None]
  - DYSPNOEA [None]
  - JOINT SWELLING [None]
  - SKIN EXFOLIATION [None]
